FAERS Safety Report 5018588-9 (Version None)
Quarter: 2006Q2

REPORT INFORMATION
  Report Type: 
  Country: None (occurrence: None)
  Receive Date: 20060414
  Receipt Date: 20060105
  Transmission Date: 20061013
  Serious: No
  Sender: FDA-Public Use
  Company Number: 2006SP000077

PATIENT
  Age: 56 Year
  Sex: Male
  Weight: 70.3075 kg

DRUGS (6)
  1. LUNESTA [Suspect]
     Indication: INSOMNIA
     Dosage: 3 MG;HS;ORAL
     Route: 048
     Dates: start: 20050101
  2. LISINOPRIL [Concomitant]
  3. ASCORBIC ACID [Concomitant]
  4. VITAMIN A [Concomitant]
  5. VITAMIN D [Concomitant]
  6. VALERIAN ROOT [Concomitant]

REACTIONS (6)
  - ASTHENIA [None]
  - DREAMY STATE [None]
  - DRUG INEFFECTIVE [None]
  - DYSGEUSIA [None]
  - FEELING ABNORMAL [None]
  - INSOMNIA [None]
